FAERS Safety Report 24886741 (Version 1)
Quarter: 2025Q1

REPORT INFORMATION
  Report Type: Spontaneous
  Country: US (occurrence: US)
  Receive Date: 20250126
  Receipt Date: 20250126
  Transmission Date: 20250408
  Serious: Yes (Hospitalization, Other)
  Sender: MERCK
  Company Number: US-009507513-2501USA006258

PATIENT
  Sex: Female

DRUGS (2)
  1. KEYTRUDA [Suspect]
     Active Substance: PEMBROLIZUMAB
     Indication: Non-small cell lung cancer
     Dosage: 8 TREATMENTS, 3 WEEKS IN BETWEEN EACH TREATMENT, DOSAGE UNKNOWN
     Dates: start: 20240130, end: 202406
  2. ARICEPT [Concomitant]
     Active Substance: DONEPEZIL HYDROCHLORIDE
     Indication: Presenile dementia

REACTIONS (5)
  - Urinary tract infection [Unknown]
  - Cerebral haemorrhage [Unknown]
  - Cognitive disorder [Recovering/Resolving]
  - Memory impairment [Not Recovered/Not Resolved]
  - Weight decreased [Unknown]

NARRATIVE: CASE EVENT DATE: 20240101
